FAERS Safety Report 8074634-X (Version None)
Quarter: 2012Q1

REPORT INFORMATION
  Report Type: 
  Country: None (occurrence: None)
  Receive Date: 20120126
  Receipt Date: 20120116
  Transmission Date: 20120608
  Serious: Yes (Other)
  Sender: FDA-Public Use
  Company Number: JP-PFIZER INC-2012003672

PATIENT
  Age: 66 Year
  Sex: Male

DRUGS (4)
  1. LEVEMIR [Concomitant]
     Dosage: UNK
     Dates: start: 20090317
  2. NOVORAPID [Concomitant]
     Dosage: UNK
     Dates: start: 20090317
  3. MIGLITOL [Suspect]
     Indication: TYPE 2 DIABETES MELLITUS
     Dosage: 25 MG, 3X/DAY
     Route: 048
     Dates: start: 20100304, end: 20100311
  4. LIPITOR [Concomitant]
     Dosage: UNK

REACTIONS (1)
  - CHEST DISCOMFORT [None]
